FAERS Safety Report 8445975-9 (Version None)
Quarter: 2012Q2

REPORT INFORMATION
  Report Type: 
  Country: None (occurrence: None)
  Receive Date: 20120618
  Receipt Date: 20120612
  Transmission Date: 20120825
  Serious: No
  Sender: FDA-Public Use
  Company Number: US-PFIZER INC-2012142318

PATIENT
  Age: 18 Year
  Sex: Male

DRUGS (1)
  1. GEODON [Suspect]
     Indication: DEPRESSION
     Dosage: 20 MG, 1X/DAY
     Dates: start: 20120501

REACTIONS (2)
  - THERAPEUTIC RESPONSE UNEXPECTED [None]
  - SEDATION [None]
